FAERS Safety Report 9696535 (Version 1)
Quarter: 2013Q4

REPORT INFORMATION
  Report Type: Spontaneous
  Country: JP (occurrence: JP)
  Receive Date: 20131119
  Receipt Date: 20131119
  Transmission Date: 20140711
  Serious: Yes (Life-Threatening, Hospitalization)
  Sender: FDA-Public Use
  Company Number: JP-MYLANLABS-2013S1025346

PATIENT
  Age: 27 Year
  Sex: Female
  Weight: 68.8 kg

DRUGS (5)
  1. THIAMAZOLE [Suspect]
     Indication: BASEDOW^S DISEASE
     Dosage: 30MG/DAY
     Route: 065
  2. SODIUM VALPROATE [Concomitant]
     Indication: SCHIZOPHRENIA
     Dosage: 400MG/DAY
     Route: 065
  3. RISPERIDONE [Concomitant]
     Indication: SCHIZOPHRENIA
     Dosage: 2MG/DAY
     Route: 065
  4. LORAZEPAM [Concomitant]
     Indication: SCHIZOPHRENIA
     Dosage: 1MG/DAY
     Route: 065
  5. ESTAZOLAM [Concomitant]
     Indication: SCHIZOPHRENIA
     Dosage: 2MG/DAY
     Route: 065

REACTIONS (4)
  - Agranulocytosis [Recovering/Resolving]
  - Pneumococcal sepsis [Recovering/Resolving]
  - Upper airway obstruction [Recovering/Resolving]
  - Sinus tachycardia [Recovering/Resolving]
